FAERS Safety Report 10638499 (Version 1)
Quarter: 2014Q4

REPORT INFORMATION
  Report Type: Spontaneous
  Country: US (occurrence: US)
  Receive Date: 20141208
  Receipt Date: 20141208
  Transmission Date: 20150529
  Serious: Yes (Other)
  Sender: FDA-Public Use
  Company Number: US-BAYER-2014-178327

PATIENT
  Age: 54 Year
  Sex: Female

DRUGS (1)
  1. BETASERON [Suspect]
     Active Substance: INTERFERON BETA-1B
     Indication: MULTIPLE SCLEROSIS
     Dosage: 0.25 MG, QOD
     Dates: start: 2009

REACTIONS (5)
  - Motor dysfunction [None]
  - Pyrexia [None]
  - Feeling cold [None]
  - Feeling cold [None]
  - Pyrexia [None]

NARRATIVE: CASE EVENT DATE: 2009
